FAERS Safety Report 5596412-3 (Version None)
Quarter: 2008Q1

REPORT INFORMATION
  Report Type: 
  Country: None (occurrence: None)
  Receive Date: 20080118
  Receipt Date: 20080109
  Transmission Date: 20080703
  Serious: Yes (Death, Life-Threatening, Hospitalization, Other)
  Sender: FDA-Public Use
  Company Number: FR-PFIZER INC-2006141017

PATIENT
  Sex: Female
  Weight: 97 kg

DRUGS (6)
  1. GENOTONORM [Suspect]
     Indication: HYPOPITUITARISM
     Dosage: DAILY DOSE:1.2MG-FREQ:DAILY
     Route: 058
     Dates: start: 20050701, end: 20071129
  2. LEVOTHYROXINE SODIUM [Concomitant]
     Dosage: DAILY DOSE:125MCG
     Route: 048
  3. PREVISCAN [Concomitant]
     Route: 048
     Dates: start: 20041001
  4. POTASSIUM CHLORIDE [Concomitant]
     Route: 048
     Dates: start: 20040701
  5. DESMOPRESSIN [Concomitant]
     Route: 048
     Dates: start: 20040301
  6. ACTOS [Concomitant]
     Dates: start: 20060403, end: 20060810

REACTIONS (1)
  - PANCREATITIS HAEMORRHAGIC [None]
